FAERS Safety Report 5761707-7 (Version None)
Quarter: 2008Q2

REPORT INFORMATION
  Report Type: 
  Country: None (occurrence: None)
  Receive Date: 20080606
  Receipt Date: 20080527
  Transmission Date: 20081010
  Serious: Yes (Other)
  Sender: FDA-Public Use
  Company Number: ES-PFIZER INC-2008044807

PATIENT
  Age: 51 Year
  Sex: Female

DRUGS (1)
  1. METRONIDAZOLE TABLET [Suspect]

REACTIONS (1)
  - ANAPHYLACTIC REACTION [None]
